FAERS Safety Report 8815977 (Version 8)
Quarter: 2014Q3

REPORT INFORMATION
  Report Type: Spontaneous
  Country: US (occurrence: US)
  Receive Date: 20120928
  Receipt Date: 20140818
  Transmission Date: 20150326
  Serious: Yes (Hospitalization, Other)
  Sender: FDA-Public Use
  Company Number: US-009507513-2012SP034978

PATIENT
  Sex: Female
  Weight: 54.42 kg

DRUGS (5)
  1. NUVARING [Suspect]
     Active Substance: ETHINYL ESTRADIOL\ETONOGESTREL
     Dosage: UNK
     Route: 067
     Dates: start: 20071221, end: 200810
  2. PENTASA [Concomitant]
     Active Substance: MESALAMINE
     Indication: CROHN^S DISEASE
     Dosage: 1000 MG, BID
  3. NUVARING [Suspect]
     Active Substance: ETHINYL ESTRADIOL\ETONOGESTREL
     Dosage: UNK
     Route: 067
     Dates: start: 20090411, end: 20100824
  4. NUVARING [Suspect]
     Active Substance: ETHINYL ESTRADIOL\ETONOGESTREL
     Indication: CONTRACEPTION
     Dosage: UNK
     Route: 067
     Dates: start: 200611, end: 2007
  5. REMICADE [Concomitant]
     Active Substance: INFLIXIMAB

REACTIONS (21)
  - Viral rash [Unknown]
  - Small intestinal obstruction [Unknown]
  - Skin mass [Unknown]
  - Intracranial venous sinus thrombosis [Recovered/Resolved]
  - Perineal operation [Unknown]
  - Ileal stenosis [Unknown]
  - Ear pain [Not Recovered/Not Resolved]
  - Nausea [Not Recovered/Not Resolved]
  - Lymphadenopathy [Unknown]
  - Vaginal fistula repair [Unknown]
  - Jugular vein thrombosis [Not Recovered/Not Resolved]
  - Pneumonia [Unknown]
  - Crohn^s disease [Unknown]
  - Photosensitivity reaction [Not Recovered/Not Resolved]
  - Vaginal fistula [Unknown]
  - Headache [Not Recovered/Not Resolved]
  - Tendon sheath lesion excision [Unknown]
  - Wound [Unknown]
  - Intestinal resection [Unknown]
  - Vomiting [Not Recovered/Not Resolved]
  - Erythema nodosum [Unknown]

NARRATIVE: CASE EVENT DATE: 20061122
